FAERS Safety Report 18255307 (Version 4)
Quarter: 2021Q3

REPORT INFORMATION
  Report Type: Report from Study
  Country: US (occurrence: US)
  Receive Date: 20200911
  Receipt Date: 20210901
  Transmission Date: 20211014
  Serious: Yes (Other)
  Sender: FDA-Public Use
  Company Number: NVSC2020US247712

PATIENT
  Sex: Male

DRUGS (2)
  1. MEKINIST [Suspect]
     Active Substance: TRAMETINIB DIMETHYL SULFOXIDE
     Indication: METASTATIC MALIGNANT MELANOMA
     Dosage: 2 MG, QD
     Route: 048
  2. TAFINLAR [Suspect]
     Active Substance: DABRAFENIB MESYLATE
     Indication: METASTATIC MALIGNANT MELANOMA
     Dosage: 150 MG, BID
     Route: 048

REACTIONS (7)
  - Post procedural swelling [Recovering/Resolving]
  - Fatigue [Recovered/Resolved]
  - Post procedural erythema [Not Recovered/Not Resolved]
  - Dizziness [Recovered/Resolved]
  - Pancreatitis [Unknown]
  - Nausea [Recovered/Resolved]
  - Headache [Recovered/Resolved]
